FAERS Safety Report 8351420-4 (Version None)
Quarter: 2012Q2

REPORT INFORMATION
  Report Type: 
  Country: None (occurrence: None)
  Receive Date: 20120510
  Receipt Date: 20120503
  Transmission Date: 20120825
  Serious: Yes (Hospitalization)
  Sender: FDA-Public Use
  Company Number: US-RB-029220-11

PATIENT
  Age: 43 Year
  Sex: Female

DRUGS (9)
  1. SUBOXONE [Suspect]
     Dosage: DOSAGE INFORMATION UNKNOWN- 24 TO 32 MG A DAY
     Route: 060
     Dates: start: 20080101
  2. SUBOXONE [Suspect]
     Dosage: 8-12 MG DAILY
     Route: 060
     Dates: start: 20090101, end: 20110601
  3. ADDERALL 5 [Concomitant]
     Indication: ATTENTION DEFICIT/HYPERACTIVITY DISORDER
     Dosage: DOSING DETAILS UNKNOWN
     Route: 065
  4. SUBOXONE [Suspect]
     Indication: DRUG DEPENDENCE
     Dosage: DOSAGE INFORMATION UNKNOWN- 16 TO 24 MG DAILY
     Route: 060
     Dates: start: 20110409
  5. SUBOXONE [Suspect]
     Route: 060
  6. SUBOXONE [Suspect]
     Indication: PAIN
     Route: 060
     Dates: end: 20110408
  7. SUBOXONE [Suspect]
     Dosage: 8-12 MG DAILY
     Route: 060
     Dates: start: 20110101, end: 20120429
  8. XANAX [Concomitant]
     Indication: ANXIETY
     Dosage: DOSAGE INFORMATION UNKNOWN- 6 MG
     Route: 065
  9. SUBOXONE [Suspect]
     Route: 060

REACTIONS (6)
  - BACK PAIN [None]
  - DRUG ABUSE [None]
  - WRONG TECHNIQUE IN DRUG USAGE PROCESS [None]
  - PAIN IN EXTREMITY [None]
  - INTERVERTEBRAL DISC PROTRUSION [None]
  - PAIN [None]
